FAERS Safety Report 8714993 (Version 2)
Quarter: 2012Q4

REPORT INFORMATION
  Report Type: 
  Country: US (occurrence: US)
  Receive Date: 20120809
  Receipt Date: 20121218
  Transmission Date: 20130627
  Serious: Yes (Other)
  Sender: FDA-Public Use
  Company Number: US-JNJFOC-20120203285

PATIENT
  Age: 66 Year
  Sex: Male

DRUGS (2)
  1. EVICEL [Suspect]
     Indication: PTERYGIUM
     Route: 065
  2. ALL OTHER THERAPEUTIC PRODUCT [Concomitant]
     Indication: PTERYGIUM
     Route: 065

REACTIONS (2)
  - Wound dehiscence [Unknown]
  - Off label use [Unknown]
